FAERS Safety Report 11081430 (Version 1)
Quarter: 2015Q2

REPORT INFORMATION
  Report Type: Spontaneous
  Country: US (occurrence: None)
  Receive Date: 20150430
  Receipt Date: 20150430
  Transmission Date: 20150821
  Serious: No
  Sender: FDA-Public Use
  Company Number: None

PATIENT
  Sex: Female
  Weight: 85.82 kg

DRUGS (1)
  1. GENERIC LEXAPRO [Suspect]
     Active Substance: ESCITALOPRAM OXALATE
     Indication: DEPRESSION
     Route: 048
     Dates: start: 20080812, end: 20100209

REACTIONS (2)
  - Product substitution issue [None]
  - Therapeutic response decreased [None]

NARRATIVE: CASE EVENT DATE: 20100209
